FAERS Safety Report 21819060 (Version 1)
Quarter: 2023Q1

REPORT INFORMATION
  Report Type: Spontaneous
  Country: ES (occurrence: ES)
  Receive Date: 20230104
  Receipt Date: 20230104
  Transmission Date: 20230418
  Serious: Yes (Other)
  Sender: FDA-Public Use
  Company Number: None

PATIENT
  Age: 60 Year
  Sex: Female

DRUGS (1)
  1. YESCARTA [Suspect]
     Active Substance: AXICABTAGENE CILOLEUCEL
     Indication: Diffuse large B-cell lymphoma
     Dosage: UNK, ONCE
     Route: 042
     Dates: start: 20211209, end: 20211209

REACTIONS (1)
  - Eosinophilic cellulitis [Recovered/Resolved]

NARRATIVE: CASE EVENT DATE: 20220525
